FAERS Safety Report 9628597 (Version 1)
Quarter: 2013Q4

REPORT INFORMATION
  Report Type: Spontaneous
  Country: RU (occurrence: RU)
  Receive Date: 20131017
  Receipt Date: 20131017
  Transmission Date: 20140711
  Serious: Yes (Death)
  Sender: FDA-Public Use
  Company Number: RU-ASTRAZENECA-2013SE75818

PATIENT
  Age: 30 Year
  Sex: Male

DRUGS (2)
  1. MERONEM [Suspect]
     Indication: PNEUMONIA
     Route: 042
     Dates: start: 201309
  2. COLISTIN (COLISTIMETHATE SODIUM) [Concomitant]
     Indication: PNEUMONIA
     Route: 065
     Dates: start: 201309

REACTIONS (1)
  - Haemorrhagic disorder [Fatal]
